FAERS Safety Report 4508047-1 (Version None)
Quarter: 2004Q4

REPORT INFORMATION
  Report Type: 
  Country: None (occurrence: None)
  Receive Date: 20041122
  Receipt Date: 20041122
  Transmission Date: 20050328
  Serious: Yes (Hospitalization)
  Sender: FDA-Public Use
  Company Number: None

PATIENT
  Age: 56 Year
  Sex: Male
  Weight: 110 kg

DRUGS (2)
  1. WARFARIN SODIUM [Suspect]
     Indication: ATRIAL FIBRILLATION
     Dosage: 12.5 MG Q DAY ORAL
     Route: 048
     Dates: start: 20031125, end: 20041118
  2. CARBAMAZEPINE [Suspect]
     Indication: CONVULSION
     Dosage: 600 MG Q DAY ORAL
     Route: 048
     Dates: start: 20020308, end: 20041118

REACTIONS (11)
  - BACTERIA URINE IDENTIFIED [None]
  - DRUG INTERACTION [None]
  - DRUG LEVEL ABOVE THERAPEUTIC [None]
  - DRUG TOXICITY [None]
  - INTERNATIONAL NORMALISED RATIO INCREASED [None]
  - NITRITE URINE PRESENT [None]
  - OEDEMA PERIPHERAL [None]
  - PAIN IN EXTREMITY [None]
  - TREATMENT NONCOMPLIANCE [None]
  - URINARY TRACT INFECTION [None]
  - URINE LEUKOCYTE ESTERASE POSITIVE [None]
